FAERS Safety Report 5727166-5 (Version None)
Quarter: 2008Q2

REPORT INFORMATION
  Report Type: 
  Country: None (occurrence: None)
  Receive Date: 20080505
  Receipt Date: 20080423
  Transmission Date: 20081010
  Serious: Yes (Other)
  Sender: FDA-Public Use
  Company Number: PHBS2008FR04264

PATIENT
  Age: 46 Year
  Sex: Female

DRUGS (1)
  1. CARTEOLOL HYDROCHLORIDE [Suspect]
     Indication: GLAUCOMA TRAUMATIC
     Dosage: `
     Dates: start: 20070829

REACTIONS (8)
  - BIOPSY [None]
  - GRANULOMA [None]
  - GRANULOMA SKIN [None]
  - MACROPHAGES INCREASED [None]
  - RASH ERYTHEMATOUS [None]
  - RASH PAPULAR [None]
  - SKIN LESION [None]
  - SKIN ULCER [None]
